FAERS Safety Report 9766257 (Version 1)
Quarter: 2013Q4

REPORT INFORMATION
  Report Type: Spontaneous
  Country: US (occurrence: US)
  Receive Date: 20131217
  Receipt Date: 20131217
  Transmission Date: 20140711
  Serious: No
  Sender: FDA-Public Use
  Company Number: US-GLAXOSMITHKLINE-A1048873A

PATIENT
  Sex: 0

DRUGS (2)
  1. MEKINIST [Suspect]
     Indication: NEOPLASM MALIGNANT
     Dosage: 2MG PER DAY
     Route: 048
     Dates: start: 201310
  2. MULTIPLE MEDICATIONS [Concomitant]

REACTIONS (1)
  - Rash [Not Recovered/Not Resolved]
